FAERS Safety Report 24630658 (Version 1)
Quarter: 2024Q4

REPORT INFORMATION
  Report Type: Spontaneous
  Country: US (occurrence: None)
  Receive Date: 20241117
  Receipt Date: 20241117
  Transmission Date: 20250115
  Serious: Yes (Hospitalization)
  Sender: Public
  Company Number: None

PATIENT
  Sex: Male

DRUGS (2)
  1. XOLAIR PFS [Suspect]
     Active Substance: OMALIZUMAB
     Indication: Idiopathic urticaria
     Dosage: FREQ: INJECT 2 SYRINGES UNDER THE SKIN (SUBCUTANEOUS INJECTION) EVERY 28 DAYS.
     Route: 058
     Dates: start: 20230524
  2. FUROSEMIDE [Concomitant]

REACTIONS (1)
  - Adverse drug reaction [None]
